FAERS Safety Report 7992039-4 (Version None)
Quarter: 2011Q4

REPORT INFORMATION
  Report Type: 
  Country: None (occurrence: None)
  Receive Date: 20111219
  Receipt Date: 20110926
  Transmission Date: 20120403
  Serious: No
  Sender: FDA-Public Use
  Company Number: US-ASTRAZENECA-2011SE57920

PATIENT
  Age: 78 Year
  Sex: Female
  Weight: 56.7 kg

DRUGS (2)
  1. CRESTOR [Suspect]
     Indication: HYPERCHOLESTEROLAEMIA
     Dosage: EVERY OTHER DAY
     Route: 048
  2. CRESTOR [Suspect]
     Route: 048

REACTIONS (1)
  - ALOPECIA [None]
